FAERS Safety Report 11444653 (Version 1)
Quarter: 2015Q3

REPORT INFORMATION
  Report Type: Spontaneous
  Country: US (occurrence: None)
  Receive Date: 20150831
  Receipt Date: 20150831
  Transmission Date: 20151125
  Serious: Yes (Other)
  Sender: FDA-Public Use
  Company Number: ADR-2015-01644

PATIENT
  Age: 58 Year
  Sex: Female

DRUGS (2)
  1. BUPIVACAINE INTRATHECAL 20 MG/ML [Suspect]
     Active Substance: BUPIVACAINE
  2. LIORESAL [Suspect]
     Active Substance: BACLOFEN

REACTIONS (2)
  - Femur fracture [None]
  - Hypoaesthesia [None]

NARRATIVE: CASE EVENT DATE: 20150401
